FAERS Safety Report 9376906 (Version 1)
Quarter: 2013Q3

REPORT INFORMATION
  Report Type: Spontaneous
  Country: GB (occurrence: GB)
  Receive Date: 20130701
  Receipt Date: 20130701
  Transmission Date: 20140515
  Serious: Yes (Disabling, Other)
  Sender: FDA-Public Use
  Company Number: GB-ACCORD-018193

PATIENT
  Age: 65 Year
  Sex: Female
  Weight: 91 kg

DRUGS (3)
  1. SIMVASTATIN [Suspect]
     Indication: PRODUCT USED FOR UNKNOWN INDICATION
     Dates: start: 20130213, end: 20130313
  2. CLOPIDOGREL [Concomitant]
     Dates: start: 20130227, end: 20130327
  3. BENDROFLUMETHIAZIDE [Concomitant]
     Dates: start: 20130213, end: 20130313

REACTIONS (2)
  - Lethargy [Recovered/Resolved]
  - Myalgia [Recovered/Resolved]
